FAERS Safety Report 10511351 (Version 1)
Quarter: 2014Q4

REPORT INFORMATION
  Report Type: Spontaneous
  Country: US (occurrence: None)
  Receive Date: 20141009
  Receipt Date: 20141009
  Transmission Date: 20150528
  Serious: No
  Sender: FDA-Public Use
  Company Number: None

PATIENT
  Sex: Female

DRUGS (1)
  1. CIMZIA [Suspect]
     Active Substance: CERTOLIZUMAB PEGOL
     Indication: RHEUMATOID ARTHRITIS
     Dosage: 200 MG/ML ONCE EVERY 4 WEEKS SUBCUTANEOUSLY
     Route: 058
     Dates: start: 20091218, end: 20140723

REACTIONS (2)
  - Cellulitis [None]
  - Arthropathy [None]
